FAERS Safety Report 9815360 (Version 2)
Quarter: 2014Q1

REPORT INFORMATION
  Report Type: Spontaneous
  Country: US (occurrence: US)
  Receive Date: 20140114
  Receipt Date: 20140117
  Transmission Date: 20141002
  Serious: Yes (Other)
  Sender: FDA-Public Use
  Company Number: US-RB-061678-14

PATIENT
  Age: 50 Year
  Sex: Male

DRUGS (1)
  1. DELSYM ADULT ORANGE LIQUID [Suspect]
     Indication: PRODUCT USED FOR UNKNOWN INDICATION
     Dosage: 2 10ML DOSES ON 28-DEC-2013.
     Route: 048
     Dates: start: 20131228

REACTIONS (11)
  - Incoherent [Recovered/Resolved]
  - Tremor [Recovered/Resolved]
  - Disorientation [Recovered/Resolved]
  - Feeling abnormal [Recovered/Resolved]
  - Confusional state [Recovered/Resolved]
  - Inappropriate schedule of drug administration [Recovered/Resolved]
  - Decreased activity [Recovered/Resolved]
  - Feeling abnormal [Recovered/Resolved]
  - Photopsia [Recovered/Resolved]
  - Nervousness [Recovered/Resolved]
  - Emotional distress [Recovered/Resolved]
